FAERS Safety Report 8009068-7 (Version None)
Quarter: 2011Q4

REPORT INFORMATION
  Report Type: 
  Country: None (occurrence: None)
  Receive Date: 20111227
  Receipt Date: 20111220
  Transmission Date: 20120403
  Serious: No
  Sender: FDA-Public Use
  Company Number: US-PFIZER INC-2011310089

PATIENT

DRUGS (2)
  1. CORDARONE [Concomitant]
     Dosage: UNK
  2. CORDARONE [Suspect]
     Dosage: UNK
     Route: 042

REACTIONS (1)
  - UNEVALUABLE EVENT [None]
